FAERS Safety Report 12332672 (Version 1)
Quarter: 2016Q2

REPORT INFORMATION
  Report Type: Spontaneous
  Country: US (occurrence: US)
  Receive Date: 20160504
  Receipt Date: 20160504
  Transmission Date: 20160815
  Serious: No
  Sender: FDA-Public Use
  Company Number: ALCN2016US002952

PATIENT
  Age: 75 Year
  Sex: Male

DRUGS (2)
  1. PROPARACAINE HCL [Suspect]
     Active Substance: PROPARACAINE HYDROCHLORIDE
     Indication: APPLICATION SITE ANAESTHESIA
     Dosage: 5 GTT, ONCE/SINGLE
     Route: 047
     Dates: start: 20160323, end: 20160323
  2. ANTIGLAUCOMA PREPARATIONS AND MIOTICS [Concomitant]
     Indication: GLAUCOMA
     Dosage: UNK GTT, UNK
     Route: 047

REACTIONS (1)
  - Eye pain [Not Recovered/Not Resolved]

NARRATIVE: CASE EVENT DATE: 20160323
